FAERS Safety Report 14498260 (Version 2)
Quarter: 2018Q1

REPORT INFORMATION
  Report Type: Spontaneous
  Country: US (occurrence: US)
  Receive Date: 20180207
  Receipt Date: 20180214
  Transmission Date: 20180509
  Serious: Yes (Hospitalization)
  Sender: FDA-Public Use
  Company Number: US-VERTEX PHARMACEUTICALS-2018-000915

PATIENT
  Age: 25 Year
  Sex: Male

DRUGS (13)
  1. CAYSTON [Concomitant]
     Active Substance: AZTREONAM
  2. VITAMIN D [Concomitant]
     Active Substance: CHOLECALCIFEROL
  3. INSULIN [Concomitant]
     Active Substance: INSULIN NOS
  4. AZITHROMYCIN ANHYDROUS. [Concomitant]
     Active Substance: AZITHROMYCIN ANHYDROUS
  5. ZENPEP [Concomitant]
     Active Substance: PANCRELIPASE AMYLASE\PANCRELIPASE LIPASE\PANCRELIPASE PROTEASE
  6. PULMOZYME [Concomitant]
     Active Substance: DORNASE ALFA
  7. DEKA [Concomitant]
  8. SODIUM CHLORIDE. [Concomitant]
     Active Substance: SODIUM CHLORIDE
  9. TOBRAMYCIN. [Concomitant]
     Active Substance: TOBRAMYCIN
  10. ORKAMBI [Suspect]
     Active Substance: IVACAFTOR\LUMACAFTOR
     Indication: CYSTIC FIBROSIS
     Dosage: 2 TABLETS (200-125 MG), BID
     Route: 048
     Dates: start: 20150903
  11. ALBUTEROL                          /00139501/ [Concomitant]
     Active Substance: ALBUTEROL
  12. CIPROFLOXACINE                     /00697201/ [Concomitant]
     Active Substance: CIPROFLOXACIN
  13. FLONASE                            /00908302/ [Concomitant]
     Active Substance: MOMETASONE FUROATE

REACTIONS (1)
  - Infective pulmonary exacerbation of cystic fibrosis [Recovering/Resolving]

NARRATIVE: CASE EVENT DATE: 20180108
